FAERS Safety Report 6935567-2 (Version None)
Quarter: 2010Q3

REPORT INFORMATION
  Report Type: 
  Country: None (occurrence: None)
  Receive Date: 20100823
  Receipt Date: 20100812
  Transmission Date: 20110219
  Serious: Yes (Hospitalization)
  Sender: FDA-Public Use
  Company Number: US-BIOGENIDEC-2010BI007762

PATIENT
  Age: 61 Year
  Sex: Male
  Weight: 45 kg

DRUGS (2)
  1. AVONEX [Suspect]
     Indication: MULTIPLE SCLEROSIS
     Route: 030
     Dates: start: 19960101, end: 20030101
  2. AVONEX [Suspect]
     Route: 030
     Dates: start: 20030101

REACTIONS (5)
  - CYSTITIS [None]
  - DECUBITUS ULCER [None]
  - DYSURIA [None]
  - MOBILITY DECREASED [None]
  - PYREXIA [None]
